FAERS Safety Report 5794190-6 (Version None)
Quarter: 2008Q2

REPORT INFORMATION
  Report Type: 
  Country: None (occurrence: None)
  Receive Date: 20080627
  Receipt Date: 20080617
  Transmission Date: 20081010
  Serious: Yes (Other)
  Sender: FDA-Public Use
  Company Number: US-PFIZER INC-2008050860

PATIENT
  Sex: Male
  Weight: 63.5 kg

DRUGS (2)
  1. LYRICA [Suspect]
     Indication: BACK PAIN
     Route: 048
     Dates: start: 20071101, end: 20080201
  2. GEMFIBROZIL [Concomitant]

REACTIONS (2)
  - LIVER FUNCTION TEST ABNORMAL [None]
  - RASH [None]
